FAERS Safety Report 6033239-2 (Version None)
Quarter: 2009Q1

REPORT INFORMATION
  Report Type: 
  Country: None (occurrence: None)
  Receive Date: 20090109
  Receipt Date: 20080909
  Transmission Date: 20090719
  Serious: Yes (Other)
  Sender: FDA-Public Use
  Company Number: JP-PFIZER INC-2009151913

PATIENT

DRUGS (1)
  1. MIGLITOL [Suspect]
     Dosage: 150 MG, UNK
     Route: 048
     Dates: start: 20080606, end: 20080725

REACTIONS (1)
  - PNEUMATOSIS INTESTINALIS [None]
